FAERS Safety Report 6048704-1 (Version None)
Quarter: 2009Q1

REPORT INFORMATION
  Report Type: 
  Country: None (occurrence: None)
  Receive Date: 20090123
  Receipt Date: 20090115
  Transmission Date: 20090719
  Serious: Yes (Hospitalization)
  Sender: FDA-Public Use
  Company Number: JP-ROCHE-606844

PATIENT
  Sex: Male
  Weight: 66 kg

DRUGS (8)
  1. XELODA [Suspect]
     Indication: COLON CANCER METASTATIC
     Route: 048
     Dates: start: 20080910, end: 20081209
  2. DIOVAN [Concomitant]
     Route: 048
     Dates: start: 20061028
  3. ASPIRIN [Concomitant]
     Dosage: DOSE FORM: ENTERIC.
     Route: 048
     Dates: start: 20070217, end: 20080811
  4. ASPIRIN [Concomitant]
     Route: 048
     Dates: start: 20080901
  5. MIYA BM [Concomitant]
     Route: 048
     Dates: start: 20080901, end: 20081222
  6. MAGMITT [Concomitant]
     Route: 048
     Dates: start: 20080901, end: 20081222
  7. DAI-KENCHU-TO [Concomitant]
     Dosage: FORM ORAL FORMULATION (NOS).
     Route: 048
     Dates: start: 20080901, end: 20081222
  8. PYDOXAL [Concomitant]
     Dates: start: 20080910, end: 20081209

REACTIONS (3)
  - DECREASED APPETITE [None]
  - HYPERAMMONAEMIA [None]
  - MALAISE [None]
